FAERS Safety Report 9380889 (Version 2)
Quarter: 2013Q3

REPORT INFORMATION
  Report Type: Spontaneous
  Country: JP (occurrence: JP)
  Receive Date: 20130703
  Receipt Date: 20130723
  Transmission Date: 20140515
  Serious: Yes (Life-Threatening, Hospitalization, Other)
  Sender: FDA-Public Use
  Company Number: JP-PFIZER INC-2013192315

PATIENT
  Age: 40 Year
  Sex: Male
  Weight: 95 kg

DRUGS (4)
  1. BREDININ [Concomitant]
     Indication: PROPHYLAXIS AGAINST TRANSPLANT REJECTION
     Dosage: 200 MG DAILY
     Dates: start: 199911
  2. MEDROL [Suspect]
     Indication: PROPHYLAXIS AGAINST TRANSPLANT REJECTION
     Dosage: 4 MG DAILY
     Dates: start: 199911
  3. PROGRAF [Concomitant]
     Indication: PROPHYLAXIS AGAINST TRANSPLANT REJECTION
     Dosage: 3 MG DAILY
     Dates: start: 199911
  4. AZANIN [Concomitant]
     Indication: PROPHYLAXIS AGAINST TRANSPLANT REJECTION
     Dosage: 100 MG DAILY
     Dates: start: 199911

REACTIONS (1)
  - Aortic aneurysm rupture [Recovering/Resolving]
